FAERS Safety Report 6666618-0 (Version None)
Quarter: 2010Q2

REPORT INFORMATION
  Report Type: 
  Country: None (occurrence: None)
  Receive Date: 20100405
  Receipt Date: 20100323
  Transmission Date: 20101027
  Serious: Yes (Hospitalization)
  Sender: FDA-Public Use
  Company Number: US-BIOGENIDEC-2010BI006042

PATIENT
  Sex: Male

DRUGS (2)
  1. TYSABRI [Suspect]
     Indication: MULTIPLE SCLEROSIS
     Route: 042
     Dates: start: 20061012, end: 20090901
  2. TYSABRI [Suspect]
     Route: 042
     Dates: start: 20100101, end: 20100312

REACTIONS (2)
  - MULTIPLE SCLEROSIS [None]
  - PAIN [None]
